FAERS Safety Report 11337368 (Version 1)
Quarter: 2015Q3

REPORT INFORMATION
  Report Type: Spontaneous
  Country: US (occurrence: US)
  Receive Date: 20150803
  Receipt Date: 20150803
  Transmission Date: 20151125
  Serious: No
  Sender: FDA-Public Use
  Company Number: US-ELI_LILLY_AND_COMPANY-US200906000206

PATIENT
  Age: 66 Year
  Sex: Male

DRUGS (2)
  1. INSULIN [Concomitant]
     Active Substance: INSULIN NOS
     Dosage: 600 U, DAILY (1/D)
  2. ZYPREXA [Suspect]
     Active Substance: OLANZAPINE

REACTIONS (2)
  - Weight increased [Recovered/Resolved]
  - Blood glucose fluctuation [Recovered/Resolved]
